FAERS Safety Report 14466958 (Version 1)
Quarter: 2018Q1

REPORT INFORMATION
  Report Type: Other
  Country: US (occurrence: US)
  Receive Date: 20180131
  Receipt Date: 20180131
  Transmission Date: 20180509
  Serious: No
  Sender: FDA-Public Use
  Company Number: US-ACORDA-ACO_138065_2017

PATIENT
  Age: 47 Year
  Sex: Female

DRUGS (4)
  1. COPAXONE [Suspect]
     Active Substance: GLATIRAMER ACETATE
     Indication: PRODUCT USED FOR UNKNOWN INDICATION
     Dosage: UNK
     Route: 065
  2. AMPYRA [Suspect]
     Active Substance: DALFAMPRIDINE
     Indication: GAIT DISTURBANCE
  3. AMPYRA [Suspect]
     Active Substance: DALFAMPRIDINE
     Indication: MULTIPLE SCLEROSIS
     Dosage: UNK
     Route: 065
  4. AVONEX [Suspect]
     Active Substance: INTERFERON BETA-1A
     Indication: MULTIPLE SCLEROSIS
     Dosage: UNK
     Route: 065

REACTIONS (14)
  - Liver function test increased [Unknown]
  - Muscle spasms [Unknown]
  - Fatigue [Unknown]
  - Contusion [Unknown]
  - Multiple sclerosis [Unknown]
  - Injection site pain [Unknown]
  - Burning sensation [Unknown]
  - Balance disorder [Unknown]
  - Influenza like illness [Unknown]
  - Urticaria [Unknown]
  - Condition aggravated [Unknown]
  - Depression [Unknown]
  - Drug ineffective [Unknown]
  - Pain [Unknown]
